FAERS Safety Report 4288670-2 (Version None)
Quarter: 2004Q1

REPORT INFORMATION
  Report Type: 
  Country: None (occurrence: None)
  Receive Date: 20040205
  Receipt Date: 20040126
  Transmission Date: 20041129
  Serious: Yes (Hospitalization)
  Sender: FDA-Public Use
  Company Number: FR-JNJFOC-20040105308

PATIENT
  Age: 64 Year
  Sex: Female

DRUGS (5)
  1. TRAMADOL HCL [Suspect]
     Indication: DRUG USE FOR UNKNOWN INDICATION
     Dosage: 200 MG, 1 IN 1 DAY,ORAL
     Route: 048
     Dates: start: 20030326, end: 20030326
  2. CELEBREX [Suspect]
     Indication: DRUG USE FOR UNKNOWN INDICATION
     Dosage: 2 IU, ORAL
     Route: 048
     Dates: start: 20030226, end: 20030302
  3. ASPEGIC (ACETYLSALICYLIC LYSINE) UNKNOWN [Suspect]
     Indication: DRUG USE FOR UNKNOWN INDICATION
     Dosage: ORAL
     Route: 048
  4. ASPEGIC 325 [Suspect]
     Indication: CEREBRAL THROMBOSIS
     Dosage: 100 MG, 1 IN 1 DAY, ORAL
     Route: 048
  5. CHONDROSULF (CHONDROITIN SULFATE SODIUM) [Suspect]
     Indication: DRUG USE FOR UNKNOWN INDICATION
     Dosage: 1200 MG, 1 IN 1 DAY, ORAL
     Route: 048

REACTIONS (10)
  - ARTHRALGIA [None]
  - ASPIRATION BONE MARROW ABNORMAL [None]
  - ASTHENIA [None]
  - CRYOGLOBULINAEMIA [None]
  - DRUG INTERACTION [None]
  - LEUKOPENIA [None]
  - NEUTROPENIA [None]
  - PYREXIA [None]
  - THROMBOCYTOPENIA [None]
  - VASCULAR PURPURA [None]
